FAERS Safety Report 9802791 (Version 1)
Quarter: 2014Q1

REPORT INFORMATION
  Report Type: Report from Study
  Country: US (occurrence: US)
  Receive Date: 20140108
  Receipt Date: 20140108
  Transmission Date: 20141002
  Serious: Yes (Other)
  Sender: FDA-Public Use
  Company Number: US-ROCHE-1330606

PATIENT
  Sex: 0

DRUGS (6)
  1. RITUXIMAB [Suspect]
     Indication: CHRONIC LYMPHOCYTIC LEUKAEMIA
     Dosage: ON DAY 29 OF CYCLE 1
     Route: 065
  2. RITUXIMAB [Suspect]
     Dosage: ON DAY 31 AND 33
     Route: 065
  3. RITUXIMAB [Suspect]
     Dosage: WEEKLY X 4 FOR CYCLE 2 AND ON DAY 1 FOR CYCLES 3-7
     Route: 065
  4. LENALIDOMIDE [Suspect]
     Indication: CHRONIC LYMPHOCYTIC LEUKAEMIA
     Route: 065
  5. ALLOPURINOL [Concomitant]
     Route: 065
  6. ASPIRIN [Concomitant]
     Route: 065

REACTIONS (6)
  - Tumour flare [Unknown]
  - Tumour lysis syndrome [Unknown]
  - Neutropenia [Unknown]
  - Thrombocytopenia [Unknown]
  - Anaemia [Unknown]
  - Fatigue [Unknown]
